FAERS Safety Report 4975506-7 (Version None)
Quarter: 2006Q2

REPORT INFORMATION
  Report Type: 
  Country: None (occurrence: None)
  Receive Date: 20060410
  Receipt Date: 20060324
  Transmission Date: 20061013
  Serious: Yes (Other)
  Sender: FDA-Public Use
  Company Number: 223484

PATIENT
  Sex: Male

DRUGS (1)
  1. XOLAIR [Suspect]
     Dosage: SUBCUTANEOUS
     Route: 058

REACTIONS (1)
  - HEPATITIS [None]
